FAERS Safety Report 4777633-6 (Version None)
Quarter: 2005Q3

REPORT INFORMATION
  Report Type: 
  Country: None (occurrence: None)
  Receive Date: 20050921
  Receipt Date: 20050907
  Transmission Date: 20060218
  Serious: Yes (Other)
  Sender: FDA-Public Use
  Company Number: USA0509107503

PATIENT
  Age: 76 Year
  Sex: Female

DRUGS (2)
  1. EVISTA [Suspect]
  2. CHOLESTYRAMINE [Concomitant]

REACTIONS (9)
  - BONE SCAN ABNORMAL [None]
  - DEHYDRATION [None]
  - DIARRHOEA [None]
  - DRUG DOSE OMISSION [None]
  - GALLBLADDER OPERATION [None]
  - GASTRIC DISORDER [None]
  - LOSS OF CONSCIOUSNESS [None]
  - MYOCARDIAL INFARCTION [None]
  - POST PROCEDURAL COMPLICATION [None]
